FAERS Safety Report 11321441 (Version 1)
Quarter: 2015Q3

REPORT INFORMATION
  Report Type: Report from Study
  Country: US (occurrence: US)
  Receive Date: 20150729
  Receipt Date: 20150729
  Transmission Date: 20151125
  Serious: No
  Sender: FDA-Public Use
  Company Number: PHHY2012US133082

PATIENT
  Sex: Female

DRUGS (22)
  1. ATARAX [Concomitant]
     Active Substance: HYDROXYZINE\HYDROXYZINE HYDROCHLORIDE
     Dosage: UNK
  2. SIMVASTATIN. [Concomitant]
     Active Substance: SIMVASTATIN
     Dosage: UNK
  3. PERIACTIN [Concomitant]
     Active Substance: CYPROHEPTADINE HYDROCHLORIDE
     Dosage: UNK
  4. RANITIDINE [Concomitant]
     Active Substance: RANITIDINE\RANITIDINE HYDROCHLORIDE
     Dosage: UNK
  5. XYZAL [Concomitant]
     Active Substance: LEVOCETIRIZINE DIHYDROCHLORIDE
     Dosage: 5 MG, QD (1 IN 1 DAY)
  6. MUCINEX [Concomitant]
     Active Substance: GUAIFENESIN
     Dosage: 2 DF, QD (2 IN 1 DAY)
  7. DULERA [Concomitant]
     Active Substance: FORMOTEROL FUMARATE DIHYDRATE\MOMETASONE FUROATE
     Dosage: 2 DF, QD (2 IN 1 DAY)
  8. REQUIP [Concomitant]
     Active Substance: ROPINIROLE HYDROCHLORIDE
     Dosage: 1 MG, QD (1 IN 1 DAY)
  9. BENADRYL [Concomitant]
     Active Substance: DIPHENHYDRAMINE HYDROCHLORIDE
     Dosage: UNK
  10. EPIPEN [Concomitant]
     Active Substance: EPINEPHRINE
     Dosage: UNK
  11. ASMANEX [Concomitant]
     Active Substance: MOMETASONE FUROATE
     Dosage: 2 DF, QD (2 IN 1 DAY)
  12. NASALCROM [Concomitant]
     Active Substance: CROMOLYN SODIUM
     Dosage: 2 DF, QD (2 IN 1 DAY)
     Route: 045
  13. PREVACID [Concomitant]
     Active Substance: LANSOPRAZOLE
     Dosage: 30 MG, QD (1 IN 1 DAY)
  14. CLOBETASOL [Concomitant]
     Active Substance: CLOBETASOL
     Dosage: 2 DF, QD (2 IN 1 DAY)
  15. PROCHLORPERAZINE. [Suspect]
     Active Substance: PROCHLORPERAZINE
     Indication: NAUSEA
     Dosage: UNK
  16. ZYRTEC [Concomitant]
     Active Substance: CETIRIZINE HYDROCHLORIDE
     Dosage: 10 MG, QD (1 IN 1 DAY)
  17. NASONEX [Concomitant]
     Active Substance: MOMETASONE FUROATE
     Dosage: 2 DF, QD (2 IN 1 DAY)
  18. ASPIRIN. [Concomitant]
     Active Substance: ASPIRIN
     Dosage: 81 MG, UNK
  19. FORADIL [Concomitant]
     Active Substance: FORMOTEROL FUMARATE
     Dosage: 12 UG, UNK
  20. CLARITIN [Concomitant]
     Active Substance: LORATADINE
     Dosage: UNK
  21. XOLAIR [Suspect]
     Active Substance: OMALIZUMAB
     Indication: ASTHMA
     Dosage: 150 MG, EVERY 4 WEEKS
     Route: 058
  22. OMEGA-3 ACIDS [Concomitant]
     Active Substance: OMEGA-3 FATTY ACIDS
     Dosage: 1000 MG, UNK

REACTIONS (6)
  - Nausea [Unknown]
  - Depressed mood [Unknown]
  - Dermatitis contact [Unknown]
  - Rash pruritic [Unknown]
  - Urticaria [Unknown]
  - Pallor [Unknown]
